FAERS Safety Report 10660757 (Version 2)
Quarter: 2016Q1

REPORT INFORMATION
  Report Type: Spontaneous
  Country: IT (occurrence: IT)
  Receive Date: 20141217
  Receipt Date: 20160225
  Transmission Date: 20160525
  Serious: Yes (Other)
  Sender: FDA-Public Use
  Company Number: IT-BRISTOL-MYERS SQUIBB COMPANY-BMS-2014-002181

PATIENT
  Age: 16 Year
  Sex: Female

DRUGS (3)
  1. ETOPOSIDE. [Suspect]
     Active Substance: ETOPOSIDE
     Indication: PRODUCT USED FOR UNKNOWN INDICATION
     Dosage: 200 MG/M2, UNK
     Route: 065
  2. THIOTEPA. [Suspect]
     Active Substance: THIOTEPA
     Indication: PRODUCT USED FOR UNKNOWN INDICATION
     Dosage: 250 MG/M2, UNK
     Route: 065
  3. CYCLOPHOSPHAMIDE. [Suspect]
     Active Substance: CYCLOPHOSPHAMIDE
     Indication: PRODUCT USED FOR UNKNOWN INDICATION
     Dosage: 60 MG/M2, UNK
     Route: 065

REACTIONS (4)
  - Focal nodular hyperplasia [Unknown]
  - Hepatotoxicity [Unknown]
  - Hepatic neoplasm [Unknown]
  - Drug administered to patient of inappropriate age [Unknown]
